FAERS Safety Report 8280845-0 (Version None)
Quarter: 2012Q2

REPORT INFORMATION
  Report Type: 
  Country: None (occurrence: None)
  Receive Date: 20120412
  Receipt Date: 20120406
  Transmission Date: 20120825
  Serious: Yes (Other)
  Sender: FDA-Public Use
  Company Number: US-ABBOTT-11P-163-0804576-00

PATIENT
  Sex: Female

DRUGS (4)
  1. MULTI-VITAMINS [Concomitant]
     Indication: PREGNANCY
  2. PROMETRIUM [Suspect]
     Indication: ABORTION SPONTANEOUS
     Dates: start: 20110101, end: 20110501
  3. PROMETRIUM [Suspect]
     Indication: PROPHYLAXIS
     Dates: start: 20110501, end: 20110601
  4. ASPIRIN [Concomitant]
     Indication: METHYLENETETRAHYDROFOLATE REDUCTASE DEFICIENCY

REACTIONS (3)
  - VAGINAL HAEMORRHAGE [None]
  - ABORTION SPONTANEOUS [None]
  - OFF LABEL USE [None]
